FAERS Safety Report 21340606 (Version 1)
Quarter: 2022Q3

REPORT INFORMATION
  Report Type: Spontaneous
  Country: US (occurrence: US)
  Receive Date: 20220916
  Receipt Date: 20220916
  Transmission Date: 20221027
  Serious: Yes (Hospitalization, Other)
  Sender: FDA-Public Use
  Company Number: US-Hikma Pharmaceuticals USA Inc.-US-H14001-22-02298

PATIENT
  Age: 37 Year
  Sex: Male

DRUGS (1)
  1. TORSEMIDE [Suspect]
     Active Substance: TORSEMIDE
     Indication: Chronic kidney disease
     Dosage: UNKNOWN
     Route: 065

REACTIONS (3)
  - Pemphigoid [Recovering/Resolving]
  - Drug hypersensitivity [Recovering/Resolving]
  - Intentional dose omission [Recovered/Resolved]
